FAERS Safety Report 8516624-6 (Version None)
Quarter: 2012Q3

REPORT INFORMATION
  Report Type: 
  Country: None (occurrence: None)
  Receive Date: 20120718
  Receipt Date: 20120706
  Transmission Date: 20120928
  Serious: Yes (Disabling, Other)
  Sender: FDA-Public Use
  Company Number: US-JNJFOC-20120703379

PATIENT
  Sex: Female
  Weight: 61.24 kg

DRUGS (1)
  1. TOPAMAX [Suspect]
     Indication: COMPLEX PARTIAL SEIZURES
     Route: 048
     Dates: start: 19980101

REACTIONS (19)
  - DISABILITY [None]
  - GLOMERULAR FILTRATION RATE DECREASED [None]
  - BLOOD POTASSIUM DECREASED [None]
  - SENSORY DISTURBANCE [None]
  - MIXED CONNECTIVE TISSUE DISEASE [None]
  - OSTEOPENIA [None]
  - PAIN [None]
  - GOITRE [None]
  - FIBROMYALGIA [None]
  - ARTHRALGIA [None]
  - DYSPHAGIA [None]
  - POLYP [None]
  - DYSPNOEA [None]
  - SYSTEMIC LUPUS ERYTHEMATOSUS [None]
  - BLOOD CREATININE INCREASED [None]
  - DUODENAL ULCER [None]
  - MALIGNANT MELANOMA [None]
  - BLOOD CALCIUM DECREASED [None]
  - VITAMIN D DEFICIENCY [None]
